FAERS Safety Report 7907703-2 (Version None)
Quarter: 2011Q4

REPORT INFORMATION
  Report Type: 
  Country: None (occurrence: None)
  Receive Date: 20111109
  Receipt Date: 20111109
  Transmission Date: 20120403
  Serious: Yes (Other)
  Sender: FDA-Public Use
  Company Number: None

PATIENT
  Age: 77 Year
  Sex: Female
  Weight: 40.8237 kg

DRUGS (1)
  1. RECLAST [Suspect]
     Dosage: ANNUAL - IV
     Route: 042
     Dates: start: 20110808

REACTIONS (1)
  - MEMORY IMPAIRMENT [None]
